FAERS Safety Report 7479591-2 (Version None)
Quarter: 2011Q2

REPORT INFORMATION
  Report Type: 
  Country: None (occurrence: None)
  Receive Date: 20110513
  Receipt Date: 20090731
  Transmission Date: 20111010
  Serious: Yes (Death, Other)
  Sender: FDA-Public Use
  Company Number: US-BAYER-200928752NA

PATIENT
  Age: 78 Year
  Sex: Female
  Weight: 81.633 kg

DRUGS (15)
  1. ACETYLSALICYLIC ACID SRT [Concomitant]
     Dosage: UNK
     Route: 048
     Dates: start: 19950101
  2. LOPRESSOR [Concomitant]
     Dosage: 25 MG. TWICE DAILY
     Route: 048
     Dates: start: 19950101
  3. CITALOPRAM HYDROBROMIDE [Concomitant]
     Dosage: 10MG
     Route: 048
  4. TRASYLOL [Suspect]
     Indication: CORONARY ARTERY BYPASS
     Dosage: 200ML/20 MIN FOLLOWED BY DRIP AT 50 ML/HOUR
     Route: 042
     Dates: start: 20071101
  5. HYZAAR [Concomitant]
     Dosage: UNK
     Route: 048
     Dates: start: 19950101
  6. PLETAL [Concomitant]
     Dosage: UNK
     Route: 048
     Dates: start: 19950101
  7. FRESH FROZEN PLASMA [Concomitant]
     Dosage: 2 UNITS
     Route: 042
     Dates: start: 20080426
  8. ZOCOR [Concomitant]
     Dosage: UNK
     Route: 048
     Dates: start: 19950101
  9. HEPARIN [Concomitant]
     Dosage: 3MG/KG
     Route: 042
     Dates: start: 20041101
  10. RED BLOOD CELLS, CONCENTRATED [Concomitant]
     Dosage: 3 UNITS
     Route: 042
     Dates: start: 20071102
  11. RED BLOOD CELLS, CONCENTRATED [Concomitant]
     Dosage: UNK
     Route: 042
     Dates: start: 20080427
  12. DIGOXIN [Concomitant]
     Dosage: 0.125 MG EVERY 8 HR
     Route: 048
  13. RED BLOOD CELLS, CONCENTRATED [Concomitant]
     Dosage: UNK
     Route: 042
     Dates: start: 20080426
  14. ANCEF [Concomitant]
     Dosage: GM. I
     Route: 042
     Dates: start: 20071101
  15. FRESH FROZEN PLASMA [Concomitant]
     Dosage: 1 UNIT
     Route: 042
     Dates: start: 20080427

REACTIONS (13)
  - RENAL INJURY [None]
  - RENAL FAILURE [None]
  - FEAR [None]
  - DEATH [None]
  - MULTI-ORGAN FAILURE [None]
  - CARDIOGENIC SHOCK [None]
  - PAIN [None]
  - UNEVALUABLE EVENT [None]
  - RENAL IMPAIRMENT [None]
  - EMOTIONAL DISTRESS [None]
  - ANXIETY [None]
  - INJURY [None]
  - STRESS [None]
